FAERS Safety Report 25184756 (Version 1)
Quarter: 2025Q2

REPORT INFORMATION
  Report Type: Spontaneous
  Country: GB (occurrence: GB)
  Receive Date: 20250410
  Receipt Date: 20250410
  Transmission Date: 20250717
  Serious: Yes (Hospitalization, Other)
  Sender: AMGEN
  Company Number: GB-AMGEN-GBRSP2025066060

PATIENT
  Age: 10 Year
  Sex: Female

DRUGS (2)
  1. ADALIMUMAB [Suspect]
     Active Substance: ADALIMUMAB
     Indication: Crohn^s disease
     Dosage: UNK UNK, Q2WK, INJECTIONS
     Route: 065
  2. USTEKINUMAB [Suspect]
     Active Substance: USTEKINUMAB
     Indication: Crohn^s disease
     Route: 065

REACTIONS (7)
  - Weight decreased [Unknown]
  - Fatigue [Unknown]
  - Emotional distress [Unknown]
  - Panic attack [Unknown]
  - Respiration abnormal [Unknown]
  - Drug ineffective [Unknown]
  - Off label use [Unknown]
